FAERS Safety Report 8885573 (Version 3)
Quarter: 2013Q2

REPORT INFORMATION
  Report Type: Spontaneous
  Country: GB (occurrence: GB)
  Receive Date: 20121105
  Receipt Date: 20130422
  Transmission Date: 20140414
  Serious: Yes (Other)
  Sender: FDA-Public Use
  Company Number: GB-JNJFOC-20120201262

PATIENT
  Age: 41 Year
  Sex: Male

DRUGS (3)
  1. RISPERDAL CONSTA [Suspect]
     Indication: SCHIZOPHRENIA
     Route: 030
  2. RISPERDAL CONSTA [Suspect]
     Indication: SCHIZOPHRENIA
     Dosage: INITIATED SEVEN YEARS AGO
     Route: 030
     Dates: start: 201103
  3. SEROQUEL [Concomitant]
     Indication: PRODUCT USED FOR UNKNOWN INDICATION
     Route: 065

REACTIONS (24)
  - Delusion [Not Recovered/Not Resolved]
  - Drug abuse [Unknown]
  - Dysuria [Unknown]
  - Asthenia [Unknown]
  - Mydriasis [Unknown]
  - Drug ineffective [Unknown]
  - Memory impairment [Not Recovered/Not Resolved]
  - Poor quality sleep [Not Recovered/Not Resolved]
  - Weight increased [Unknown]
  - Non-cardiac chest pain [Unknown]
  - Abdominal pain [Unknown]
  - Dyskinesia [Unknown]
  - Activities of daily living impaired [Unknown]
  - Nausea [Unknown]
  - Dizziness [Unknown]
  - Disorientation [Unknown]
  - Feeling abnormal [Unknown]
  - Coordination abnormal [Unknown]
  - Malaise [Unknown]
  - Malaise [Not Recovered/Not Resolved]
  - Adverse event [Unknown]
  - Insomnia [Unknown]
  - Nightmare [Unknown]
  - Sensory disturbance [Unknown]
